FAERS Safety Report 7808004-3 (Version None)
Quarter: 2011Q4

REPORT INFORMATION
  Report Type: 
  Country: None (occurrence: None)
  Receive Date: 20111011
  Receipt Date: 20111011
  Transmission Date: 20120403
  Serious: Yes (Hospitalization)
  Sender: FDA-Public Use
  Company Number: None

PATIENT
  Age: 13 Year
  Sex: Female
  Weight: 58.8 kg

DRUGS (1)
  1. VINCRISTINE [Suspect]
     Indication: RHABDOMYOSARCOMA
     Dosage: 2 MG
     Route: 041
     Dates: start: 20110930, end: 20111001

REACTIONS (6)
  - ASTHENIA [None]
  - PAIN [None]
  - NEUROTOXICITY [None]
  - PARAESTHESIA [None]
  - PAIN IN EXTREMITY [None]
  - DEPRESSION [None]
